FAERS Safety Report 8885884 (Version 1)
Quarter: 2012Q4

REPORT INFORMATION
  Report Type: Report from Study
  Country: IT (occurrence: IT)
  Receive Date: 20121105
  Receipt Date: 20121105
  Transmission Date: 20130627
  Serious: Yes (Death, Hospitalization)
  Sender: FDA-Public Use
  Company Number: IT-CELGENEUS-083-21880-12063889

PATIENT
  Age: 85 Year
  Sex: Male

DRUGS (11)
  1. REVLIMID [Suspect]
     Indication: NON-HODGKIN^S LYMPHOMA
     Dosage: 10 Milligram
     Route: 048
     Dates: start: 20100222, end: 20100320
  2. REVLIMID [Suspect]
     Dosage: 10 Milligram
     Route: 048
     Dates: start: 20100430, end: 20100519
  3. REVLIMID [Suspect]
     Dosage: 10 Milligram
     Route: 048
     Dates: start: 20100728, end: 20100824
  4. PARIET [Concomitant]
     Indication: PREVENTION
     Dosage: 1 cp
     Route: 065
  5. CORDARONE [Concomitant]
     Indication: ATRIAL FIBRILLATION
     Dosage: 1 cp
     Route: 065
     Dates: start: 2009
  6. LASIX [Concomitant]
     Indication: DIURETIC THERAPY
     Dosage: 1 cp
     Route: 065
  7. ALDACTONE [Concomitant]
     Indication: DIURETIC THERAPY
     Dosage: 1 cp
     Route: 065
  8. SELEDIE [Concomitant]
     Indication: PROPHYLAXIS
     Dosage: 1 Fl
     Route: 065
     Dates: start: 20100223
  9. ZEFFIX [Concomitant]
     Indication: HEPATITIS B VIRUS TEST POSITIVE
     Dosage: 1 cp
     Route: 065
  10. DEURSIL [Concomitant]
     Indication: CHOLEDOCHOLITHIASIS
     Dosage: 1 cp
     Route: 065
  11. RITUXIMAB [Concomitant]
     Indication: LYMPHOMA
     Dosage: 53.5714 Milligram
     Route: 065
     Dates: start: 20100222, end: 20100802

REACTIONS (9)
  - Sepsis [Fatal]
  - Febrile neutropenia [Recovered/Resolved]
  - Jaundice cholestatic [Recovered/Resolved]
  - Jaundice cholestatic [Recovered/Resolved]
  - Staphylococcal infection [Recovered/Resolved]
  - Disease progression [Unknown]
  - Hypercreatininaemia [Unknown]
  - Neutropenia [Unknown]
  - Conjunctivitis [Recovered/Resolved]
